FAERS Safety Report 10033869 (Version 1)
Quarter: 2014Q1

REPORT INFORMATION
  Report Type: Other
  Country: DE (occurrence: DE)
  Receive Date: 20140325
  Receipt Date: 20140325
  Transmission Date: 20141002
  Serious: Yes (Other)
  Sender: FDA-Public Use
  Company Number: DE-LUPIN PHARMACEUTICALS INC.-E2B_00001827

PATIENT
  Age: 1 Day
  Sex: Male
  Weight: 2.7 kg

DRUGS (3)
  1. LAMOTRIGIN [Suspect]
     Indication: EPILEPSY
     Route: 064
  2. LAMOTRIGIN [Suspect]
     Dosage: 350MG/DAY OR DOSAGE INCREASING AT THE END 150-100-150 MG/DAY
     Route: 064
     Dates: start: 20120307, end: 20121118
  3. FOLSAURE [Concomitant]
     Indication: PROPHYLAXIS OF NEURAL TUBE DEFECT
     Route: 064

REACTIONS (2)
  - Neonatal respiratory distress syndrome [Recovered/Resolved]
  - Foetal exposure during pregnancy [Unknown]
